FAERS Safety Report 5416838-8 (Version None)
Quarter: 2007Q3

REPORT INFORMATION
  Report Type: 
  Country: None (occurrence: None)
  Receive Date: 20070815
  Receipt Date: 20070815
  Transmission Date: 20080115
  Serious: Yes (Hospitalization)
  Sender: FDA-Public Use
  Company Number: None

PATIENT
  Sex: Female
  Weight: 74 kg

DRUGS (3)
  1. TAXOL [Suspect]
     Dosage: 300 MG
  2. CYCLOPHOSPHAMIDE [Suspect]
     Dosage: 1030 MG
  3. DOXORUBICIN HYDROCHLORIDE [Suspect]
     Dosage: 100 MG

REACTIONS (5)
  - ARTHRALGIA [None]
  - BRONCHOSPASM [None]
  - HAEMOGLOBIN DECREASED [None]
  - NEUTROPENIA [None]
  - PNEUMONIA [None]
